FAERS Safety Report 14555323 (Version 1)
Quarter: 2018Q1

REPORT INFORMATION
  Report Type: Spontaneous
  Country: US (occurrence: US)
  Receive Date: 20180220
  Receipt Date: 20180220
  Transmission Date: 20180509
  Serious: Yes (Hospitalization)
  Sender: FDA-Public Use
  Company Number: US-IMPAX LABORATORIES, INC-2018-IPXL-00465

PATIENT
  Age: 81 Year
  Sex: Male

DRUGS (1)
  1. SEVELAMER CARBONATE. [Suspect]
     Active Substance: SEVELAMER CARBONATE
     Indication: END STAGE RENAL DISEASE
     Dosage: UNK
     Route: 065

REACTIONS (5)
  - Duodenal ulcer haemorrhage [Recovered/Resolved]
  - Gastrointestinal inflammation [Recovered/Resolved]
  - Haematochezia [Recovered/Resolved]
  - Gastrointestinal injury [Recovered/Resolved]
  - Haematocrit decreased [Recovered/Resolved]
